FAERS Safety Report 6555002-6 (Version None)
Quarter: 2010Q1

REPORT INFORMATION
  Report Type: 
  Country: None (occurrence: None)
  Receive Date: 20100126
  Receipt Date: 20100126
  Transmission Date: 20100710
  Serious: Yes (Other)
  Sender: FDA-Public Use
  Company Number: None

PATIENT
  Age: 37 Year
  Sex: Female
  Weight: 50.8029 kg

DRUGS (4)
  1. PRISTIQ [Suspect]
     Indication: COGNITIVE DISORDER
     Dosage: 100MG TWICE PER DAY PO; 200MG TWICE PER DAY PO
     Route: 048
     Dates: start: 20091011, end: 20091124
  2. PRISTIQ [Suspect]
     Indication: DEPRESSION
     Dosage: 100MG TWICE PER DAY PO; 200MG TWICE PER DAY PO
     Route: 048
     Dates: start: 20091011, end: 20091124
  3. PRISTIQ [Suspect]
     Indication: HEAD INJURY
     Dosage: 100MG TWICE PER DAY PO; 200MG TWICE PER DAY PO
     Route: 048
     Dates: start: 20091011, end: 20091124
  4. LEVOTHYROXINE SODIUM [Concomitant]

REACTIONS (5)
  - CONDITION AGGRAVATED [None]
  - DEPRESSION [None]
  - MANIA [None]
  - MOOD ALTERED [None]
  - SUICIDAL IDEATION [None]
